FAERS Safety Report 9383893 (Version 1)
Quarter: 2013Q3

REPORT INFORMATION
  Report Type: Spontaneous
  Country: US (occurrence: US)
  Receive Date: 20130705
  Receipt Date: 20130705
  Transmission Date: 20140515
  Serious: No
  Sender: FDA-Public Use
  Company Number: US-009507513-1306USA013893

PATIENT
  Age: 20 Year
  Sex: Female

DRUGS (3)
  1. BETAMETHASONE [Suspect]
  2. LABETALOL HYDROCHLORIDE [Concomitant]
  3. MAGNESIUM SULFATE [Concomitant]

REACTIONS (1)
  - Exposure during pregnancy [Unknown]
